FAERS Safety Report 5796895-X (Version None)
Quarter: 2008Q2

REPORT INFORMATION
  Report Type: 
  Country: None (occurrence: None)
  Receive Date: 20080627
  Receipt Date: 20080616
  Transmission Date: 20081010
  Serious: Yes (Death)
  Sender: FDA-Public Use
  Company Number: 056-20785-08060469

PATIENT
  Age: 77 Year
  Sex: Male

DRUGS (6)
  1. THALIDOMIDE [Suspect]
     Indication: MULTIPLE MYELOMA
     Dosage: 100 MG DAILY ORAL
     Route: 048
     Dates: start: 20080320, end: 20080525
  2. NEURONTIN [Concomitant]
  3. MIRTAZAPINE [Concomitant]
  4. RIFINAH (RIFINAH) [Concomitant]
  5. VALACYCLOVIR HCL [Concomitant]
  6. PREVISCAN (FLUINDIONE) [Concomitant]

REACTIONS (2)
  - EPILEPSY [None]
  - MULTI-ORGAN FAILURE [None]
